FAERS Safety Report 9786492 (Version 1)
Quarter: 2013Q4

REPORT INFORMATION
  Report Type: Report from Study
  Country: US (occurrence: US)
  Receive Date: 20131227
  Receipt Date: 20131227
  Transmission Date: 20140711
  Serious: Yes (Hospitalization, Other)
  Sender: FDA-Public Use
  Company Number: US-ABBVIE-13P-163-1180292-00

PATIENT
  Sex: Female
  Weight: 66.28 kg

DRUGS (9)
  1. SIMVASTATIN [Concomitant]
     Indication: BLOOD CHOLESTEROL INCREASED
  2. FOSAMAX [Concomitant]
     Indication: ANAEMIA
  3. HYDROCHLOROT [Concomitant]
     Indication: HYPERTENSION
  4. HUMIRA [Suspect]
     Indication: RHEUMATOID ARTHRITIS
     Dates: end: 201308
  5. HUMIRA [Suspect]
     Dates: start: 2013
  6. LEFLUNOMIDE [Concomitant]
     Indication: OSTEOARTHRITIS
  7. VERAPAMIL [Concomitant]
     Indication: HYPERTENSION
  8. BENICAR [Concomitant]
     Indication: HYPERTENSION
  9. METOPROLOL [Concomitant]
     Indication: HYPERTENSION

REACTIONS (4)
  - Chondropathy [Recovered/Resolved]
  - Cataract [Recovered/Resolved]
  - Bone erosion [Recovered/Resolved]
  - Joint dislocation [Recovered/Resolved]
